FAERS Safety Report 4561227-1 (Version None)
Quarter: 2005Q1

REPORT INFORMATION
  Report Type: 
  Country: None (occurrence: None)
  Receive Date: 20050121
  Receipt Date: 20050103
  Transmission Date: 20050727
  Serious: Yes (Life-Threatening, Hospitalization, Other)
  Sender: FDA-Public Use
  Company Number: ALMO2005002

PATIENT
  Age: 20 Year
  Sex: Female
  Weight: 59.09 kg

DRUGS (6)
  1. ALMOTRIPTAN [Suspect]
     Indication: MIGRAINE
  2. ALBUTEROL [Concomitant]
  3. METOCLOPRAMIDE HYDROCHLORIDE [Concomitant]
  4. DICLOFENAC SODIUM [Concomitant]
  5. FLUOXETINE HYDROCHLORIDE [Concomitant]
  6. LEVONORGESTREL AND ETHINYL ESTRADIOL [Concomitant]

REACTIONS (1)
  - ANAPHYLACTOID REACTION [None]
